FAERS Safety Report 5823251-8 (Version None)
Quarter: 2008Q3

REPORT INFORMATION
  Report Type: 
  Country: None (occurrence: None)
  Receive Date: 20080724
  Receipt Date: 20080724
  Transmission Date: 20090109
  Serious: No
  Sender: FDA-Public Use
  Company Number: None

PATIENT
  Age: 55 Year
  Sex: Female
  Weight: 68.0396 kg

DRUGS (1)
  1. MIRALAX [Suspect]
     Indication: CONSTIPATION
     Dates: start: 20080722, end: 20080722

REACTIONS (3)
  - NASAL DISCOMFORT [None]
  - OEDEMA MOUTH [None]
  - URTICARIA [None]
